FAERS Safety Report 8574561-5 (Version None)
Quarter: 2012Q3

REPORT INFORMATION
  Report Type: 
  Country: None (occurrence: None)
  Receive Date: 20120806
  Receipt Date: 20120731
  Transmission Date: 20120928
  Serious: Yes (Death)
  Sender: FDA-Public Use
  Company Number: CHPA2012US016818

PATIENT
  Age: 79 Year
  Sex: Male

DRUGS (1)
  1. ALUMINUM HYDROXIDE AND MAGNESIUM TRISILICATE [Suspect]
     Indication: GASTRIC ULCER
     Dosage: UNK, UNK
     Route: 048

REACTIONS (2)
  - LUNG NEOPLASM MALIGNANT [None]
  - OFF LABEL USE [None]
